FAERS Safety Report 5779665-8 (Version None)
Quarter: 2008Q2

REPORT INFORMATION
  Report Type: 
  Country: None (occurrence: None)
  Receive Date: 20080619
  Receipt Date: 20080611
  Transmission Date: 20081010
  Serious: Yes (Other)
  Sender: FDA-Public Use
  Company Number: CA-PFIZER INC-2008050243

PATIENT
  Age: 54 Year
  Sex: Female

DRUGS (3)
  1. NORVASC [Suspect]
     Dates: start: 20051001, end: 20071001
  2. NORVASC [Suspect]
     Dates: start: 20071001, end: 20080401
  3. MICARDIS [Concomitant]

REACTIONS (1)
  - HAEMATURIA [None]
